FAERS Safety Report 5159282-3 (Version None)
Quarter: 2006Q4

REPORT INFORMATION
  Report Type: 
  Country: None (occurrence: None)
  Receive Date: 20061120
  Receipt Date: 20061106
  Transmission Date: 20070319
  Serious: Yes (Hospitalization, Other)
  Sender: FDA-Public Use
  Company Number: 2006AP000647

PATIENT
  Age: 56 Year
  Sex: Male

DRUGS (2)
  1. MINOXIDIL [Suspect]
     Indication: ALOPECIA
     Dosage: 0.5 ML; CUT_SOL; TOP; BID TOP
     Route: 061
     Dates: start: 20060101, end: 20060101
  2. MINOXIDIL [Suspect]

REACTIONS (15)
  - ACTIVITIES OF DAILY LIVING IMPAIRED [None]
  - CRANIAL NEUROPATHY [None]
  - DIPLOPIA [None]
  - DIZZINESS [None]
  - EATON-LAMBERT SYNDROME [None]
  - EXTRAOCULAR MUSCLE PARESIS [None]
  - EYE PAIN [None]
  - INFECTION [None]
  - LYMPHOCYTOSIS [None]
  - OEDEMA PERIPHERAL [None]
  - PYREXIA [None]
  - RASH GENERALISED [None]
  - SKIN HYPERPIGMENTATION [None]
  - SKIN LESION [None]
  - VISUAL DISTURBANCE [None]
